FAERS Safety Report 10513170 (Version 2)
Quarter: 2014Q4

REPORT INFORMATION
  Report Type: Spontaneous
  Country: PT (occurrence: PT)
  Receive Date: 20141013
  Receipt Date: 20141013
  Transmission Date: 20150528
  Serious: Yes (Other)
  Sender: FDA-Public Use
  Company Number: PT-AMGEN-PRTSP2014064187

PATIENT
  Age: 39 Year
  Sex: Female

DRUGS (7)
  1. ENBREL [Suspect]
     Active Substance: ETANERCEPT
     Indication: RHEUMATOID ARTHRITIS
     Dosage: 50 MG, WEEKLY
     Route: 058
     Dates: start: 20140219
  2. ENBREL [Suspect]
     Active Substance: ETANERCEPT
     Dosage: 50 MG, WEEKLY
     Route: 058
     Dates: start: 201407, end: 20140725
  3. SIMVASTATINA BASI [Concomitant]
     Indication: DYSLIPIDAEMIA
     Dosage: 40 MG, 1X/DAY
     Route: 048
     Dates: start: 201401
  4. LEFLUNOMIDA MEDAC [Concomitant]
     Indication: RHEUMATOID ARTHRITIS
     Dosage: 20 MG, 1X/DAY
     Route: 048
     Dates: start: 201401
  5. MINIGEST                           /00861601/ [Concomitant]
     Indication: CONTRACEPTION
     Dosage: 1 DF, 1X/DAY
     Route: 048
     Dates: start: 2006
  6. METHOTREXATE (METHOTREXATE SODIUM) [Concomitant]
     Active Substance: METHOTREXATE SODIUM
     Indication: RHEUMATOID ARTHRITIS
     Dosage: 20 MG, WEEKLY (8 TABLETS OF 2.5MG)
     Route: 048
     Dates: start: 201401
  7. DEFLAZACORT [Concomitant]
     Active Substance: DEFLAZACORT
     Indication: RHEUMATOID ARTHRITIS
     Dosage: 6 MG, 1X/DAY
     Route: 048
     Dates: start: 201401

REACTIONS (7)
  - Rash vesicular [Recovering/Resolving]
  - Generalised oedema [Recovering/Resolving]
  - Vulvovaginal pain [Recovering/Resolving]
  - Dyspnoea [Recovering/Resolving]
  - Rash erythematous [Recovering/Resolving]
  - Pruritus genital [Recovering/Resolving]
  - Urticaria [Unknown]

NARRATIVE: CASE EVENT DATE: 20140724
